FAERS Safety Report 25607806 (Version 1)
Quarter: 2025Q3

REPORT INFORMATION
  Report Type: Spontaneous
  Country: US (occurrence: US)
  Receive Date: 20250725
  Receipt Date: 20250725
  Transmission Date: 20251021
  Serious: Yes (Hospitalization, Other)
  Sender: MERCK SHARP & DOHME LLC
  Company Number: US-009507513-2309438

PATIENT
  Sex: Male

DRUGS (16)
  1. KEYTRUDA [Suspect]
     Active Substance: PEMBROLIZUMAB
     Indication: Lung neoplasm malignant
     Dosage: 200 MG EVERY 21 DAYS
     Route: 042
  2. CARBOPLATIN [Concomitant]
     Active Substance: CARBOPLATIN
  3. PREDNISONE [Concomitant]
     Active Substance: PREDNISONE
  4. SULFAMETH [Concomitant]
  5. OMEPRAZOLE [Concomitant]
     Active Substance: OMEPRAZOLE
  6. ELIQUIS [Concomitant]
     Active Substance: APIXABAN
  7. MAGNESIUM OXIDE [Concomitant]
     Active Substance: MAGNESIUM OXIDE
  8. OXYCODONE [Concomitant]
     Active Substance: OXYCODONE
  9. MORPHINE [Concomitant]
     Active Substance: MORPHINE
  10. POTASSIUM [Concomitant]
     Active Substance: POTASSIUM
  11. ZOFRAN [Concomitant]
     Active Substance: ONDANSETRON HYDROCHLORIDE
  12. COMPAZINE [Concomitant]
     Active Substance: PROCHLORPERAZINE MALEATE
  13. VITAMIN D [Concomitant]
     Active Substance: VITAMIN D NOS
  14. SENNA-S [Concomitant]
     Active Substance: DOCUSATE SODIUM\SENNOSIDES
  15. MELATONIN [Concomitant]
     Active Substance: MELATONIN
  16. CALCIUM [Concomitant]
     Active Substance: CALCIUM

REACTIONS (4)
  - Colitis [Unknown]
  - Pneumonitis [Unknown]
  - Incorrect product administration duration [Unknown]
  - Colitis [Unknown]
